FAERS Safety Report 25790647 (Version 1)
Quarter: 2025Q3

REPORT INFORMATION
  Report Type: Spontaneous
  Country: US (occurrence: None)
  Receive Date: 20250910
  Receipt Date: 20250910
  Transmission Date: 20251021
  Serious: Yes (Hospitalization)
  Sender: FDA-CTU
  Company Number: None

PATIENT
  Sex: Female

DRUGS (3)
  1. OPSUMIT [Suspect]
     Active Substance: MACITENTAN
     Indication: Pulmonary arterial hypertension
     Dosage: 10 MG DAILY ORAL
     Route: 048
     Dates: start: 20250825
  2. TREPROSTINIL [Suspect]
     Active Substance: TREPROSTINIL
  3. SILDENAFIL [Suspect]
     Active Substance: SILDENAFIL

REACTIONS (14)
  - Bedridden [None]
  - Cerebrovascular accident [None]
  - Amnesia [None]
  - Cardiac arrest [None]
  - Hypotension [None]
  - Pneumonia [None]
  - Cardiac disorder [None]
  - Lung disorder [None]
  - Feeling cold [None]
  - Movement disorder [None]
  - General physical health deterioration [None]
  - Hypophagia [None]
  - Arthralgia [None]
  - Oxygen consumption increased [None]
